FAERS Safety Report 4699520-4 (Version None)
Quarter: 2005Q2

REPORT INFORMATION
  Report Type: 
  Country: None (occurrence: None)
  Receive Date: 20050622
  Receipt Date: 20050607
  Transmission Date: 20051028
  Serious: Yes (Hospitalization, Other)
  Sender: FDA-Public Use
  Company Number: JP-2005-002674

PATIENT
  Age: 31 Year
  Sex: Female
  Weight: 55 kg

DRUGS (2)
  1. BETASERON [Suspect]
     Indication: MULTIPLE SCLEROSIS
     Dosage: 4 MIU
     Dates: start: 20050209, end: 20050220
  2. DANTRIUM [Concomitant]

REACTIONS (2)
  - HEPATITIS ACUTE [None]
  - MULTIPLE SCLEROSIS RELAPSE [None]
